FAERS Safety Report 20391257 (Version 1)
Quarter: 2022Q1

REPORT INFORMATION
  Report Type: Report from Study
  Country: US (occurrence: US)
  Receive Date: 20220128
  Receipt Date: 20220128
  Transmission Date: 20220423
  Serious: Yes (Other)
  Sender: FDA-Public Use
  Company Number: US-VERTEX PHARMACEUTICALS-2021-015555

PATIENT
  Sex: Female

DRUGS (1)
  1. TRIKAFTA [Suspect]
     Active Substance: ELEXACAFTOR\IVACAFTOR\TEZACAFTOR
     Indication: Cystic fibrosis
     Dosage: 2 ORANGE TABS (ELEXA 100 MG/TEZA 50 MG/IVA 75 MG) IN AM AND 1 BLUE TAB (IVA 150 MG) IN PM
     Route: 048
     Dates: start: 20210722, end: 20220110

REACTIONS (1)
  - Pancreatitis chronic [Recovering/Resolving]
